FAERS Safety Report 4387713-5 (Version None)
Quarter: 2004Q2

REPORT INFORMATION
  Report Type: 
  Country: None (occurrence: None)
  Receive Date: 20040630
  Receipt Date: 20030124
  Transmission Date: 20050107
  Serious: Yes (Death, Hospitalization)
  Sender: FDA-Public Use
  Company Number: NO-MERCK-0301NOR00013

PATIENT
  Age: 83 Year
  Sex: Male

DRUGS (8)
  1. ACETAMINOPHEN [Concomitant]
     Route: 048
  2. BENSERAZIDE HYDROCHLORIDE AND LEVODOPA [Concomitant]
     Route: 048
  3. DIPYRONE [Concomitant]
     Route: 048
  4. PARAFFIN [Concomitant]
     Route: 048
  5. PAROXETINE HYDROCHLORIDE [Concomitant]
     Route: 048
  6. VIOXX [Suspect]
     Indication: PAIN
     Route: 048
     Dates: start: 20021022, end: 20021119
  7. SENNOSIDES [Concomitant]
     Route: 048
  8. ZOPICLONE [Concomitant]
     Route: 048

REACTIONS (3)
  - GASTRIC ULCER [None]
  - MELAENA [None]
  - RECTAL HAEMORRHAGE [None]
